FAERS Safety Report 6581840-X (Version None)
Quarter: 2010Q1

REPORT INFORMATION
  Report Type: 
  Country: None (occurrence: None)
  Receive Date: 20100215
  Receipt Date: 20100209
  Transmission Date: 20100710
  Serious: Yes (Life-Threatening)
  Sender: FDA-Public Use
  Company Number: US-GILEAD-2009-0026214

PATIENT
  Sex: Female

DRUGS (14)
  1. LETAIRIS [Suspect]
     Indication: COR PULMONALE CHRONIC
     Route: 048
     Dates: start: 20091119, end: 20091209
  2. DILTIAZEM HCL [Concomitant]
  3. PROCARDIA [Concomitant]
  4. PROTONIX [Concomitant]
  5. WARFARIN [Concomitant]
  6. SIMVASTATIN [Concomitant]
  7. ATENOLOL [Concomitant]
  8. CYTOMEL [Concomitant]
  9. SYNTHROID [Concomitant]
  10. ZOLOFT [Concomitant]
  11. BONIVA [Concomitant]
  12. AMITRIPTYLINE HCL [Concomitant]
  13. PREDNISONE [Concomitant]
  14. DOXYCYCLINE [Concomitant]

REACTIONS (5)
  - HAEMOGLOBIN DECREASED [None]
  - HEPATIC ENZYME INCREASED [None]
  - NAUSEA [None]
  - VERTIGO [None]
  - VOMITING [None]
